FAERS Safety Report 6671038-9 (Version None)
Quarter: 2010Q2

REPORT INFORMATION
  Report Type: 
  Country: None (occurrence: None)
  Receive Date: 20100407
  Receipt Date: 20100324
  Transmission Date: 20101027
  Serious: Yes (Other)
  Sender: FDA-Public Use
  Company Number: US-WATSON-2010-04221

PATIENT
  Age: 30 Year
  Sex: Male
  Weight: 134 kg

DRUGS (6)
  1. TESTOSTERONE ENANTHATE [Suspect]
     Indication: DRUG ABUSE
     Dosage: 500 MG, 2/WEEK
     Route: 030
  2. METHYLTESTOSTERONE [Suspect]
     Indication: DRUG ABUSE
     Dosage: 4 IU, 5 DAYS/WK
     Route: 048
  3. INSULIN [Suspect]
     Indication: DRUG ABUSE
     Dosage: UNK
  4. EPHEDRINE [Suspect]
     Indication: DRUG ABUSE
     Dosage: 75 MG, UNKNOWN
  5. CAFFEINE [Suspect]
     Indication: DRUG ABUSE
     Dosage: 600 MG, UNK
  6. HUMAN GROWTH HORMONE, RECOMBINANT [Suspect]
     Indication: DRUG ABUSE
     Dosage: UNK

REACTIONS (1)
  - FOCAL SEGMENTAL GLOMERULOSCLEROSIS [None]
